FAERS Safety Report 18260413 (Version 1)
Quarter: 2020Q3

REPORT INFORMATION
  Report Type: Spontaneous
  Country: US (occurrence: US)
  Receive Date: 20200914
  Receipt Date: 20200914
  Transmission Date: 20201103
  Serious: No
  Sender: FDA-Public Use
  Company Number: US-009507513-2009USA002073

PATIENT
  Age: 75 Year
  Sex: Male

DRUGS (4)
  1. ASMANEX [Suspect]
     Active Substance: MOMETASONE FUROATE
     Dosage: 1 DRAW ONCE DAILY EVERY MORNING
     Dates: start: 20200903
  2. ASMANEX [Suspect]
     Active Substance: MOMETASONE FUROATE
     Dosage: 1 DRAW ONCE DAILY EVERY MORNING
  3. ASMANEX [Suspect]
     Active Substance: MOMETASONE FUROATE
     Dosage: 1 DRAW ONCE DAILY EVERY MORNING
     Dates: start: 202008, end: 20200901
  4. ASMANEX [Suspect]
     Active Substance: MOMETASONE FUROATE
     Dosage: 1 DRAW ONCE DAILY EVERY MORNING
     Dates: start: 2019, end: 2019

REACTIONS (7)
  - Product use issue [Unknown]
  - Product dose omission issue [Unknown]
  - Secretion discharge [Unknown]
  - Poor quality device used [Unknown]
  - Poor quality device used [Unknown]
  - Device malfunction [Unknown]
  - Device malfunction [Unknown]

NARRATIVE: CASE EVENT DATE: 2019
